FAERS Safety Report 6396563-X (Version None)
Quarter: 2009Q4

REPORT INFORMATION
  Report Type: 
  Country: None (occurrence: None)
  Receive Date: 20091008
  Receipt Date: 20091008
  Transmission Date: 20100525
  Serious: No
  Sender: FDA-Public Use
  Company Number: None

PATIENT
  Sex: Male
  Weight: 73 kg

DRUGS (2)
  1. CISPLATIN [Suspect]
     Dosage: 148
     Dates: end: 20090908
  2. ETOPOSIDE [Suspect]
     Dosage: 455 MG
     Dates: end: 20090910

REACTIONS (2)
  - DISEASE PROGRESSION [None]
  - NEUTROPHIL COUNT ABNORMAL [None]
